FAERS Safety Report 16701115 (Version 1)
Quarter: 2019Q3

REPORT INFORMATION
  Report Type: Spontaneous
  Country: DE (occurrence: DE)
  Receive Date: 20190814
  Receipt Date: 20190814
  Transmission Date: 20191004
  Serious: Yes (Other)
  Sender: FDA-Public Use
  Company Number: DE-MACLEODS PHARMACEUTICALS US LTD-MAC2019022513

PATIENT

DRUGS (4)
  1. RISPERIDONE. [Suspect]
     Active Substance: RISPERIDONE
     Indication: HALLUCINATION, VISUAL
     Dosage: 0.5 MILLIGRAM, BID, LOW DOSES
     Route: 065
  2. OXAZEPAM. [Concomitant]
     Active Substance: OXAZEPAM
     Dosage: 20 MILLIGRAM, QD, DOSE REDUCED
     Route: 065
  3. QUETIAPINE 50 MG [Suspect]
     Active Substance: QUETIAPINE
     Indication: HALLUCINATION, VISUAL
     Dosage: 50 MILLIGRAM, BID, LOW DOSES
     Route: 065
  4. OXAZEPAM. [Concomitant]
     Active Substance: OXAZEPAM
     Indication: SLEEP APNOEA SYNDROME
     Dosage: 20 MILLIGRAM, QD, BEDTIME
     Route: 065

REACTIONS (3)
  - Condition aggravated [Recovered/Resolved]
  - Somnolence [Recovered/Resolved]
  - Abnormal behaviour [Recovered/Resolved]
